FAERS Safety Report 13820941 (Version 1)
Quarter: 2017Q3

REPORT INFORMATION
  Report Type: Spontaneous
  Country: US (occurrence: US)
  Receive Date: 20170801
  Receipt Date: 20170801
  Transmission Date: 20171127
  Serious: No
  Sender: FDA-Public Use
  Company Number: US-GLENMARK PHARMACEUTICALS-2017GMK026404

PATIENT

DRUGS (3)
  1. PRAVASTATIN. [Concomitant]
     Active Substance: PRAVASTATIN
     Indication: PRODUCT USED FOR UNKNOWN INDICATION
     Dosage: 40 MG, QD
     Route: 048
  2. MUPIROCIN. [Suspect]
     Active Substance: MUPIROCIN
     Indication: WOUND
  3. MUPIROCIN. [Suspect]
     Active Substance: MUPIROCIN
     Indication: SKIN OPERATION
     Dosage: 3 APPLICATIONS ON HER HEAD/HAIR, TID
     Route: 061
     Dates: start: 20170116, end: 20170209

REACTIONS (5)
  - No adverse event [Unknown]
  - Exposure to toxic agent [Unknown]
  - Accidental exposure to product [Unknown]
  - Product container issue [Unknown]
  - Off label use [Unknown]

NARRATIVE: CASE EVENT DATE: 20170116
